FAERS Safety Report 5629307-7 (Version None)
Quarter: 2008Q1

REPORT INFORMATION
  Report Type: 
  Country: None (occurrence: None)
  Receive Date: 20080218
  Receipt Date: 20080207
  Transmission Date: 20080703
  Serious: Yes (Hospitalization, Other)
  Sender: FDA-Public Use
  Company Number: CA-ELI_LILLY_AND_COMPANY-CA200802001775

PATIENT
  Sex: Male

DRUGS (5)
  1. ZYPREXA [Suspect]
     Dosage: 10 MG, 3/D
  2. HALOPERIDOL [Concomitant]
  3. FLUPHENAZINE [Concomitant]
  4. CLONAZEPAM [Concomitant]
  5. EPIVAL [Concomitant]

REACTIONS (3)
  - OVERDOSE [None]
  - PLATELET COUNT DECREASED [None]
  - URINARY TRACT INFECTION [None]
